FAERS Safety Report 9314577 (Version 1)
Quarter: 2013Q2

REPORT INFORMATION
  Report Type: Report from Study
  Country: GB (occurrence: GB)
  Receive Date: 20130529
  Receipt Date: 20130529
  Transmission Date: 20140414
  Serious: Yes (Other)
  Sender: FDA-Public Use
  Company Number: GB-ROCHE-1228688

PATIENT
  Age: 60 Year
  Sex: Female
  Weight: 69 kg

DRUGS (4)
  1. BEVACIZUMAB [Suspect]
     Indication: GASTRIC CANCER
     Dosage: ACTUAL DOSE GIVEN AT MOST RECENT DOSE WAS 525: 12/FEB/2013, TREATMENT DELAYED
     Route: 042
     Dates: start: 20120502
  2. CAPECITABINE [Suspect]
     Indication: GASTRIC CANCER
     Dosage: ACTUAL DOSE GIVEN AT MOST RECENT DOSE WAS 45150: 12/DEC/2012
     Route: 048
     Dates: start: 20120502
  3. EPIRUBICIN [Suspect]
     Indication: GASTRIC CANCER
     Dosage: ACTUAL DOSE GIVEN AT MOST RECENT DOSE WAS 045: 12/DEC/2012
     Route: 042
     Dates: start: 20120502
  4. CISPLATIN [Suspect]
     Indication: GASTRIC CANCER
     Dosage: ACTUAL DOSE GIVEN AT MOST RECENT DOSE WAS 110: 12/DEC/2012
     Route: 042
     Dates: start: 20120502

REACTIONS (1)
  - Impaired healing [Recovered/Resolved]
